FAERS Safety Report 15759245 (Version 3)
Quarter: 2020Q3

REPORT INFORMATION
  Report Type: Spontaneous
  Country: FR (occurrence: FR)
  Receive Date: 20181226
  Receipt Date: 20200924
  Transmission Date: 20201102
  Serious: Yes (Hospitalization, Other)
  Sender: FDA-Public Use
  Company Number: FR-ROCHE-2235090

PATIENT
  Age: 49 Year
  Sex: Female

DRUGS (4)
  1. ALECENSA [Suspect]
     Active Substance: ALECTINIB HYDROCHLORIDE
     Indication: LUNG ADENOCARCINOMA
     Route: 065
     Dates: start: 20180802
  2. PARACETAMOL [Concomitant]
     Active Substance: ACETAMINOPHEN
  3. CRIZOTINIB [Concomitant]
     Active Substance: CRIZOTINIB
  4. MOVICOL [Concomitant]
     Active Substance: POLYETHYLENE GLYCOL 3350\POTASSIUM CHLORIDE\SODIUM BICARBONATE\SODIUM CHLORIDE

REACTIONS (3)
  - Hyperkalaemia [Not Recovered/Not Resolved]
  - Haemolysis [Recovering/Resolving]
  - Blood creatine phosphokinase increased [Recovering/Resolving]
